FAERS Safety Report 24755423 (Version 1)
Quarter: 2024Q4

REPORT INFORMATION
  Report Type: Spontaneous
  Country: CN (occurrence: CN)
  Receive Date: 20241219
  Receipt Date: 20241219
  Transmission Date: 20250115
  Serious: Yes (Other)
  Sender: FRESENIUS KABI
  Company Number: CN-FreseniusKabi-FK202418836

PATIENT
  Age: 79 Year
  Sex: Male

DRUGS (3)
  1. EGG PHOSPHOLIPIDS\GLYCERIN\MEDIUM-CHAIN TRIGLYCERIDES\SOYBEAN OIL [Suspect]
     Active Substance: EGG PHOSPHOLIPIDS\GLYCERIN\MEDIUM-CHAIN TRIGLYCERIDES\SOYBEAN OIL
     Indication: Peritonitis
     Dosage: THERAPY START TIME: 11:10?FOA: INJECTION?ROA: INTRAVENOUS DRIP (IVD)
     Dates: start: 20241204, end: 20241204
  2. 18AA amino acids [Concomitant]
     Indication: Peritonitis
  3. VITAMINS [Concomitant]
     Active Substance: VITAMINS
     Indication: Peritonitis

REACTIONS (3)
  - Seizure [Recovering/Resolving]
  - Chills [Recovered/Resolved]
  - Pyrexia [Recovering/Resolving]

NARRATIVE: CASE EVENT DATE: 20241204
